FAERS Safety Report 4319597-5 (Version None)
Quarter: 2004Q1

REPORT INFORMATION
  Report Type: 
  Country: None (occurrence: None)
  Receive Date: 20040318
  Receipt Date: 20040318
  Transmission Date: 20041129
  Serious: No
  Sender: FDA-Public Use
  Company Number: None

PATIENT
  Age: 61 Year
  Sex: Male
  Weight: 101.1521 kg

DRUGS (12)
  1. ZOCOR [Suspect]
     Indication: HYPERLIPIDAEMIA
     Dosage: 1 TAB QDAY ORAL
     Route: 048
     Dates: start: 20030617, end: 20040316
  2. ZOCOR [Concomitant]
  3. GEMFIBROZIL [Concomitant]
  4. ALLOPURINOL -ALLLOPURINOL- [Concomitant]
  5. BISOPROLOL FUMARATE [Concomitant]
  6. PROTONIX [Concomitant]
  7. TRIAMCINOLONE ACETONIDE [Concomitant]
  8. CELEBREX [Suspect]
  9. METFORMIN HCL -METFORMIN HCL- [Concomitant]
  10. GLIPIZIDE [Concomitant]
  11. COZAAR [Concomitant]
  12. CELEBREX [Concomitant]

REACTIONS (2)
  - ASPARTATE AMINOTRANSFERASE INCREASED [None]
  - BLOOD CREATINE PHOSPHOKINASE INCREASED [None]
